FAERS Safety Report 13447315 (Version 2)
Quarter: 2017Q2

REPORT INFORMATION
  Report Type: Spontaneous
  Country: JP (occurrence: JP)
  Receive Date: 20170417
  Receipt Date: 20170505
  Transmission Date: 20170830
  Serious: Yes (Other)
  Sender: FDA-Public Use
  Company Number: JP-AMGEN-JPNSP2017058288

PATIENT
  Age: 51 Year
  Sex: Male

DRUGS (16)
  1. FESIN [Concomitant]
     Active Substance: IRON SUCROSE
  2. TAKEPRON [Concomitant]
     Active Substance: LANSOPRAZOLE
  3. PARSABIV [Suspect]
     Active Substance: ETELCALCETIDE HYDROCHLORIDE
     Indication: HYPERPARATHYROIDISM SECONDARY
     Dosage: 5 MG, 3 TIMES/WK
     Route: 042
     Dates: start: 20170405, end: 20170405
  4. NESP [Concomitant]
     Active Substance: DARBEPOETIN ALFA
  5. ROHYPNOL [Concomitant]
     Active Substance: FLUNITRAZEPAM
  6. NITROPEN [Concomitant]
     Active Substance: NITROGLYCERIN
  7. REGPARA [Concomitant]
     Active Substance: CINACALCET HYDROCHLORIDE
     Dosage: 100 MG, QD
     Dates: end: 20170405
  8. REGPARA [Concomitant]
     Active Substance: CINACALCET HYDROCHLORIDE
     Dosage: UNK UNK, QD
     Dates: start: 20170412
  9. PLETAAL [Concomitant]
     Active Substance: CILOSTAZOL
  10. WYPAX [Concomitant]
     Active Substance: LORAZEPAM
  11. FOSRENOL [Concomitant]
     Active Substance: LANTHANUM CARBONATE
     Dosage: 2.250 MG, QD
  12. ZYLORIC [Concomitant]
     Active Substance: ALLOPURINOL
  13. BAYASPIRIN [Concomitant]
     Active Substance: ASPIRIN
  14. OXAROL [Concomitant]
     Active Substance: MAXACALCITOL
     Dosage: 12.5 MUG/ EACH DIALYSIS
     Route: 042
  15. NORVASC [Concomitant]
     Active Substance: AMLODIPINE BESYLATE
  16. ITOROL [Concomitant]
     Active Substance: ISOSORBIDE MONONITRATE

REACTIONS (1)
  - Blood creatine phosphokinase increased [Unknown]

NARRATIVE: CASE EVENT DATE: 20170410
